FAERS Safety Report 24749400 (Version 1)
Quarter: 2024Q4

REPORT INFORMATION
  Report Type: Spontaneous
  Country: CN (occurrence: CN)
  Receive Date: 20241218
  Receipt Date: 20241218
  Transmission Date: 20250115
  Serious: Yes (Other)
  Sender: GE HEALTHCARE
  Company Number: CN-GE HEALTHCARE-2024CSU014490

PATIENT
  Age: 56 Year
  Sex: Female
  Weight: 60 kg

DRUGS (1)
  1. VISIPAQUE [Suspect]
     Active Substance: IODIXANOL
     Indication: Computerised tomogram heart
     Dosage: 32 GM, TOTAL
     Route: 042
     Dates: start: 20241201, end: 20241201

REACTIONS (6)
  - Skin induration [Recovering/Resolving]
  - Swelling face [Recovering/Resolving]
  - Rash erythematous [Recovering/Resolving]
  - Skin warm [Recovering/Resolving]
  - Feeling hot [Recovering/Resolving]
  - Dermatitis allergic [Recovering/Resolving]

NARRATIVE: CASE EVENT DATE: 20241201
